FAERS Safety Report 6673311-7 (Version None)
Quarter: 2010Q2

REPORT INFORMATION
  Report Type: 
  Country: None (occurrence: None)
  Receive Date: 20100408
  Receipt Date: 20100405
  Transmission Date: 20101027
  Serious: Yes (Death)
  Sender: FDA-Public Use
  Company Number: JP-ELI_LILLY_AND_COMPANY-JP201004000973

PATIENT
  Sex: Male
  Weight: 55 kg

DRUGS (3)
  1. GEMZAR [Suspect]
     Indication: PANCREATIC CARCINOMA STAGE III
     Dosage: 1626 MG, OTHER
     Route: 042
     Dates: start: 20040113, end: 20040127
  2. GEMZAR [Suspect]
     Dosage: 1612 MG, OTHER
     Route: 042
     Dates: start: 20040210, end: 20040210
  3. FAMOTIDINE [Concomitant]
     Indication: GASTRITIS PROPHYLAXIS
     Dosage: 20 MG, 2/D
     Route: 048
     Dates: start: 20031117, end: 20040328

REACTIONS (3)
  - AORTIC ANEURYSM RUPTURE [None]
  - RETROPERITONEAL ABSCESS [None]
  - SMALL INTESTINAL HAEMORRHAGE [None]
